FAERS Safety Report 7803875-9 (Version None)
Quarter: 2011Q4

REPORT INFORMATION
  Report Type: 
  Country: None (occurrence: None)
  Receive Date: 20111010
  Receipt Date: 20111004
  Transmission Date: 20120403
  Serious: Yes (Other)
  Sender: FDA-Public Use
  Company Number: MX-PFIZER INC-2011238094

PATIENT
  Age: 52 Year
  Sex: Female

DRUGS (2)
  1. LYRICA [Suspect]
     Indication: PAIN
     Dosage: UNK
     Route: 048
  2. CELEBREX [Suspect]
     Indication: PAIN
     Dosage: UNK

REACTIONS (3)
  - HAND DEFORMITY [None]
  - PAIN IN EXTREMITY [None]
  - DRUG INEFFECTIVE [None]
